FAERS Safety Report 16686878 (Version 2)
Quarter: 2019Q3

REPORT INFORMATION
  Report Type: Spontaneous
  Country: BE (occurrence: BE)
  Receive Date: 20190809
  Receipt Date: 20190821
  Transmission Date: 20191004
  Serious: Yes (Death, Hospitalization, Disabling)
  Sender: FDA-Public Use
  Company Number: BE-ROCHE-2370493

PATIENT
  Sex: Female

DRUGS (2)
  1. ZELBORAF [Suspect]
     Active Substance: VEMURAFENIB
     Indication: METASTATIC LYMPHOMA
     Route: 048
  2. COTELLIC [Suspect]
     Active Substance: COBIMETINIB
     Indication: METASTATIC LYMPHOMA
     Route: 065

REACTIONS (7)
  - General physical health deterioration [Unknown]
  - General physical health deterioration [Fatal]
  - Product use in unapproved indication [Unknown]
  - Off label use [Unknown]
  - Resuscitation [Unknown]
  - Staphylococcal sepsis [Fatal]
  - Endotracheal intubation [Unknown]

NARRATIVE: CASE EVENT DATE: 201907
